FAERS Safety Report 4374768-7 (Version None)
Quarter: 2004Q2

REPORT INFORMATION
  Report Type: 
  Country: None (occurrence: None)
  Receive Date: 20040602
  Receipt Date: 20040305
  Transmission Date: 20050107
  Serious: Yes (Hospitalization, Other)
  Sender: FDA-Public Use
  Company Number: 200414710BWH

PATIENT
  Age: 27 Year
  Sex: Male
  Weight: 105.2345 kg

DRUGS (2)
  1. LEVITRA [Suspect]
     Indication: ACCIDENTAL EXPOSURE
     Dosage: ORAL
     Route: 048
     Dates: start: 20040302
  2. VICODIN [Concomitant]

REACTIONS (2)
  - DYSURIA [None]
  - PRIAPISM [None]
